FAERS Safety Report 7965889-8 (Version None)
Quarter: 2011Q4

REPORT INFORMATION
  Report Type: 
  Country: None (occurrence: None)
  Receive Date: 20111208
  Receipt Date: 20111130
  Transmission Date: 20120403
  Serious: Yes (Hospitalization, Other)
  Sender: FDA-Public Use
  Company Number: JP-VIIV HEALTHCARE LIMITED-A0956969A

PATIENT
  Age: 30 Year
  Sex: Female

DRUGS (7)
  1. EFAVIRENZ [Concomitant]
     Dates: start: 20100727, end: 20100809
  2. RETROVIR [Suspect]
     Indication: HIV INFECTION
     Dosage: 2AMP PER DAY
     Route: 042
     Dates: start: 20100629, end: 20100629
  3. KALETRA [Suspect]
     Indication: HIV INFECTION
     Dosage: 2TAB TWICE PER DAY
     Route: 048
     Dates: start: 20091223
  4. RITODRINE HYDROCHLORIDE [Concomitant]
     Dates: start: 20100621, end: 20100623
  5. EPZICOM [Suspect]
     Indication: HIV INFECTION
     Dosage: 1TAB PER DAY
     Route: 048
     Dates: start: 20091101, end: 20110208
  6. REYATAZ [Suspect]
     Indication: HIV INFECTION
     Dosage: 300MG PER DAY
     Route: 048
     Dates: start: 20091101, end: 20091222
  7. NORVIR [Suspect]
     Indication: HIV INFECTION
     Dosage: 100MG PER DAY
     Route: 048
     Dates: start: 20091101, end: 20091222

REACTIONS (7)
  - ABDOMINAL DISTENSION [None]
  - PREMATURE DELIVERY [None]
  - ANAEMIA OF PREGNANCY [None]
  - PREMATURE LABOUR [None]
  - BLOOD TRIGLYCERIDES INCREASED [None]
  - MATERNAL EXPOSURE DURING PREGNANCY [None]
  - LIVE BIRTH [None]
